FAERS Safety Report 13032302 (Version 1)
Quarter: 2016Q4

REPORT INFORMATION
  Report Type: Spontaneous
  Country: US (occurrence: US)
  Receive Date: 20161215
  Receipt Date: 20161215
  Transmission Date: 20170207
  Serious: Yes (Hospitalization, Other)
  Sender: FDA-Public Use
  Company Number: US-BAUSCH-BL-2016-031665

PATIENT
  Age: 54 Year
  Sex: Female

DRUGS (1)
  1. MINOXIDIL. [Suspect]
     Active Substance: MINOXIDIL
     Indication: COUGH
     Dosage: EQUATING TO 600 MG OF MINOXIDIL
     Route: 048

REACTIONS (4)
  - Accidental poisoning [Recovered/Resolved]
  - Myocardial infarction [Recovered/Resolved]
  - Accidental exposure to product [Unknown]
  - Hypotension [Recovered/Resolved]
